FAERS Safety Report 9949631 (Version 2)
Quarter: 2014Q1

REPORT INFORMATION
  Report Type: Report from Study
  Country: DE (occurrence: DE)
  Receive Date: 20140304
  Receipt Date: 20140304
  Transmission Date: 20141002
  Serious: Yes (Hospitalization)
  Sender: FDA-Public Use
  Company Number: DE-ROCHE-1338282

PATIENT
  Age: 61 Year
  Sex: Female
  Weight: 61 kg

DRUGS (4)
  1. BEVACIZUMAB [Suspect]
     Indication: COLON CANCER METASTATIC
     Route: 042
     Dates: start: 20130214, end: 20140107
  2. CAPECITABINE [Suspect]
     Indication: COLON CANCER METASTATIC
     Dosage: 4 DAYS, 3 DAYS BREAK
     Route: 048
     Dates: start: 20131216, end: 201402
  3. AMPHOTERICIN B [Concomitant]
     Route: 048
     Dates: start: 20140211, end: 20140222
  4. METAMIZOL [Concomitant]
     Indication: PAIN
     Dosage: 40 DROPS/4 TIMES DAILY
     Route: 048
     Dates: start: 20140123

REACTIONS (1)
  - Tendonitis [Recovered/Resolved]
